FAERS Safety Report 5868763-6 (Version None)
Quarter: 2008Q3

REPORT INFORMATION
  Report Type: 
  Country: None (occurrence: None)
  Receive Date: 20080902
  Receipt Date: 20080902
  Transmission Date: 20090109
  Serious: No
  Sender: FDA-Public Use
  Company Number: None

PATIENT
  Age: 19 Year
  Sex: Male
  Weight: 90.7194 kg

DRUGS (2)
  1. SINGULAIR [Suspect]
     Indication: DRUG EFFECT DECREASED
     Dosage: ONCE A DAY
     Dates: start: 20070201, end: 20080331
  2. SINGULAIR [Suspect]
     Indication: MULTIPLE ALLERGIES
     Dosage: ONCE A DAY
     Dates: start: 20070201, end: 20080331

REACTIONS (4)
  - DECREASED INTEREST [None]
  - FEELING ABNORMAL [None]
  - SELF ESTEEM DECREASED [None]
  - SUICIDAL IDEATION [None]
